FAERS Safety Report 8163795-X (Version None)
Quarter: 2012Q1

REPORT INFORMATION
  Report Type: 
  Country: None (occurrence: None)
  Receive Date: 20120221
  Receipt Date: 20120207
  Transmission Date: 20120608
  Serious: Yes (Hospitalization)
  Sender: FDA-Public Use
  Company Number: 2012AP000325

PATIENT
  Age: 61 Year
  Sex: Male

DRUGS (1)
  1. SERTRALINE HYDROCHLORIDE [Suspect]
     Indication: DEPRESSION
     Dosage: PO
     Route: 048
     Dates: start: 20120112, end: 20120123

REACTIONS (4)
  - HEPATORENAL FAILURE [None]
  - ACUTE HEPATIC FAILURE [None]
  - MUSCULOSKELETAL CHEST PAIN [None]
  - SEPTIC SHOCK [None]
